FAERS Safety Report 4392817-7 (Version None)
Quarter: 2004Q3

REPORT INFORMATION
  Report Type: 
  Country: None (occurrence: None)
  Receive Date: 20040702
  Receipt Date: 20040621
  Transmission Date: 20050211
  Serious: Yes (Hospitalization)
  Sender: FDA-Public Use
  Company Number: 04P-028-0262474-00

PATIENT
  Age: 73 Year
  Sex: Male
  Weight: 123.3784 kg

DRUGS (2)
  1. BIAXIN XL [Suspect]
     Indication: SINUSITIS
     Dosage: 500 MG, 2 IN 1 D, PER ORAL
     Route: 048
  2. PREDNISONE TAB [Suspect]
     Indication: POLYMYALGIA RHEUMATICA
     Dosage: 10 MG, 1 IN 1 D, PER ORAL
     Route: 048

REACTIONS (3)
  - DRUG INTERACTION [None]
  - MANIA [None]
  - SINUSITIS [None]
